FAERS Safety Report 4721990-3 (Version None)
Quarter: 2005Q3

REPORT INFORMATION
  Report Type: 
  Country: None (occurrence: None)
  Receive Date: 20050720
  Receipt Date: 20050715
  Transmission Date: 20060218
  Serious: No
  Sender: FDA-Public Use
  Company Number: 31687

PATIENT
  Sex: Female

DRUGS (2)
  1. MOXIFLOXACIN HCL [Suspect]
     Dosage: 1 GGT Q3HR OPHT
     Route: 047
  2. DEXAMETHASONE 0.1% SUSPENSION [Concomitant]

REACTIONS (7)
  - CHROMATOPSIA [None]
  - CORNEAL DISORDER [None]
  - EYE INFLAMMATION [None]
  - EYE IRRITATION [None]
  - EYE OEDEMA [None]
  - VISUAL ACUITY REDUCED [None]
  - VISUAL DISTURBANCE [None]
